FAERS Safety Report 9648574 (Version 2)
Quarter: 2013Q4

REPORT INFORMATION
  Report Type: Spontaneous
  Country: CA (occurrence: None)
  Receive Date: 20131024
  Receipt Date: 20131204
  Transmission Date: 20140711
  Serious: Yes (Death, Hospitalization, Other)
  Sender: FDA-Public Use
  Company Number: AMAG201300170

PATIENT
  Age: 78 Year
  Sex: Male

DRUGS (1)
  1. FERAHEME [Suspect]

REACTIONS (3)
  - Cardiac arrest [None]
  - Anaphylactoid reaction [None]
  - Respiratory arrest [None]
